FAERS Safety Report 14646484 (Version 1)
Quarter: 2018Q1

REPORT INFORMATION
  Report Type: Spontaneous
  Country: FR (occurrence: FR)
  Receive Date: 20180316
  Receipt Date: 20180316
  Transmission Date: 20180509
  Serious: Yes (Other)
  Sender: FDA-Public Use
  Company Number: FR-MERCK KGAA-2043886

PATIENT
  Age: 57 Year
  Sex: Female

DRUGS (1)
  1. NOVOTHYROX [Suspect]
     Active Substance: LEVOTHYROXINE SODIUM
     Indication: HYPOTHYROIDISM

REACTIONS (21)
  - Fall [Recovered/Resolved]
  - Arthralgia [Recovered/Resolved]
  - Emotional distress [Recovered/Resolved]
  - Blood cholesterol increased [None]
  - Pain in extremity [Recovered/Resolved]
  - Aggression [Recovered/Resolved]
  - Mental impairment [Recovered/Resolved]
  - Loss of personal independence in daily activities [Recovered/Resolved]
  - Sense of oppression [Recovered/Resolved]
  - Depressed mood [Recovered/Resolved]
  - Irritability [Recovered/Resolved]
  - Mental fatigue [Recovered/Resolved]
  - Anhedonia [Recovered/Resolved]
  - Impaired work ability [None]
  - Disturbance in attention [Recovered/Resolved]
  - Feeling abnormal [Recovered/Resolved]
  - Asthenia [Recovered/Resolved]
  - Fatigue [Recovered/Resolved]
  - Asthenia [Recovered/Resolved]
  - Apathy [Recovered/Resolved]
  - Social avoidant behaviour [Recovered/Resolved]

NARRATIVE: CASE EVENT DATE: 20170207
